FAERS Safety Report 4281666-6 (Version None)
Quarter: 2004Q1

REPORT INFORMATION
  Report Type: 
  Country: None (occurrence: None)
  Receive Date: 20040120
  Receipt Date: 20031008
  Transmission Date: 20041129
  Serious: No
  Sender: FDA-Public Use
  Company Number: 2003-10-2433

PATIENT
  Sex: Male

DRUGS (3)
  1. CLARINEX [Suspect]
     Dosage: ORAL
     Route: 048
  2. ALTACE [Concomitant]
  3. DILTIAZEM [Concomitant]

REACTIONS (4)
  - DIZZINESS [None]
  - FEELING HOT [None]
  - PALPITATIONS [None]
  - SOMNOLENCE [None]
